FAERS Safety Report 21400272 (Version 1)
Quarter: 2022Q3

REPORT INFORMATION
  Report Type: Spontaneous
  Country: US (occurrence: None)
  Receive Date: 20220929
  Receipt Date: 20220929
  Transmission Date: 20221027
  Serious: Yes (Hospitalization)
  Sender: FDA-Public Use
  Company Number: None

PATIENT
  Age: 62 Year
  Sex: Female

DRUGS (2)
  1. INGREZZA [Suspect]
     Active Substance: VALBENAZINE
     Indication: Dyskinesia
     Dosage: FREQUENCY : DAILY;?
     Route: 048
     Dates: start: 20220613
  2. INGREZZA [Suspect]
     Active Substance: VALBENAZINE
     Indication: Oral mucosal hypertrophy

REACTIONS (4)
  - Fall [None]
  - Femoral neck fracture [None]
  - Balance disorder [None]
  - Nasal injury [None]

NARRATIVE: CASE EVENT DATE: 20220820
